FAERS Safety Report 24176538 (Version 2)
Quarter: 2024Q3

REPORT INFORMATION
  Report Type: Spontaneous
  Country: JP (occurrence: JP)
  Receive Date: 20240806
  Receipt Date: 20240807
  Transmission Date: 20241017
  Serious: Yes (Other)
  Sender: NOVARTIS
  Company Number: JP-002147023-NVSJ2024JP008565

PATIENT
  Sex: Female
  Weight: 51 kg

DRUGS (3)
  1. LEQVIO [Suspect]
     Active Substance: INCLISIRAN SODIUM
     Indication: Dyslipidaemia
     Dosage: 300 MG
     Route: 058
     Dates: start: 20240522, end: 20240522
  2. EZETIMIBE [Concomitant]
     Active Substance: EZETIMIBE
     Indication: Product used for unknown indication
     Dosage: 10 MG
     Route: 048
  3. ROSUVASTATIN [Concomitant]
     Active Substance: ROSUVASTATIN\ROSUVASTATIN CALCIUM
     Indication: Product used for unknown indication
     Dosage: 20 MG
     Route: 048

REACTIONS (3)
  - Pancreatic carcinoma [Unknown]
  - Jaundice [Unknown]
  - Decreased appetite [Unknown]

NARRATIVE: CASE EVENT DATE: 20240716
